FAERS Safety Report 19785499 (Version 2)
Quarter: 2021Q3

REPORT INFORMATION
  Report Type: Spontaneous
  Country: BR (occurrence: BR)
  Receive Date: 20210903
  Receipt Date: 20210925
  Transmission Date: 20211014
  Serious: Yes (Other)
  Sender: FDA-Public Use
  Company Number: NVSC2021BR170175

PATIENT
  Age: 63 Year
  Sex: Female
  Weight: 73 kg

DRUGS (3)
  1. ESTALIS [Suspect]
     Active Substance: ESTRADIOL\NORETHINDRONE ACETATE
     Indication: MENOPAUSE
     Dosage: 1 PATCH (TUESDAY AND FRIDAY)
     Route: 062
     Dates: start: 20210401, end: 20210824
  2. ADDERA D3 [Concomitant]
     Active Substance: CHOLECALCIFEROL
     Indication: PROPHYLAXIS
     Dosage: 2 DF, QW (MANTECORP/FARMASA)
     Route: 048
     Dates: start: 2009
  3. CHONDROITIN GLUCOSAMIN [Concomitant]
     Active Substance: CHONDROITIN SULFATE A\GLUCOSAMINE
     Indication: PROPHYLAXIS
     Dosage: 1 DF (EVERYDAY IN THE MORNING)
     Route: 065
     Dates: start: 2009

REACTIONS (13)
  - Irritability [Recovered/Resolved]
  - Sleep disorder [Recovered/Resolved]
  - Weight increased [Not Recovered/Not Resolved]
  - Fluid retention [Not Recovered/Not Resolved]
  - Micturition urgency [Not Recovered/Not Resolved]
  - Urine output decreased [Not Recovered/Not Resolved]
  - Urinary retention [Not Recovered/Not Resolved]
  - Vaginal haemorrhage [Not Recovered/Not Resolved]
  - Feeling hot [Recovered/Resolved]
  - Discouragement [Recovered/Resolved]
  - Drug ineffective [Unknown]
  - Obesity [Not Recovered/Not Resolved]
  - Therapeutic product effect delayed [Unknown]

NARRATIVE: CASE EVENT DATE: 20210401
